FAERS Safety Report 23584582 (Version 1)
Quarter: 2024Q1

REPORT INFORMATION
  Report Type: Report from Study
  Country: US (occurrence: US)
  Receive Date: 20240301
  Receipt Date: 20240301
  Transmission Date: 20240409
  Serious: Yes (Hospitalization, Other)
  Sender: FDA-Public Use
  Company Number: US-ABBVIE-5656404

PATIENT
  Age: 64 Year
  Sex: Female

DRUGS (3)
  1. RINVOQ [Suspect]
     Active Substance: UPADACITINIB
     Indication: Rheumatoid arthritis
     Route: 048
     Dates: start: 20220101
  2. RINVOQ [Suspect]
     Active Substance: UPADACITINIB
     Indication: Rheumatoid arthritis
     Route: 048
     Dates: start: 20210226
  3. RINVOQ [Suspect]
     Active Substance: UPADACITINIB
     Indication: Rheumatoid arthritis
     Dosage: END DATE:2024, INCREASED(DOUBLED) DOSAGE
     Route: 048
     Dates: start: 20240117

REACTIONS (11)
  - Knee arthroplasty [Unknown]
  - Kidney infection [Recovered/Resolved]
  - Fungal infection [Recovered/Resolved]
  - Erythema [Recovered/Resolved]
  - Eye infection [Recovering/Resolving]
  - Cellulitis [Not Recovered/Not Resolved]
  - Oral fungal infection [Recovered/Resolved]
  - Pneumonia [Unknown]
  - Hypertension [Unknown]
  - Back pain [Not Recovered/Not Resolved]
  - Oral herpes [Recovered/Resolved]

NARRATIVE: CASE EVENT DATE: 20231001
